FAERS Safety Report 24640380 (Version 1)
Quarter: 2024Q4

REPORT INFORMATION
  Report Type: Spontaneous
  Country: CN (occurrence: CN)
  Receive Date: 20241120
  Receipt Date: 20241120
  Transmission Date: 20250115
  Serious: Yes (Hospitalization, Other)
  Sender: RANBAXY
  Company Number: CN-SUN PHARMACEUTICAL INDUSTRIES LTD-2024R1-479752

PATIENT
  Age: 64 Year
  Sex: Female

DRUGS (1)
  1. PREDNISONE [Suspect]
     Active Substance: PREDNISONE
     Indication: Nervous system disorder
     Dosage: 60 MILLIGRAM, DAILY
     Route: 048

REACTIONS (3)
  - Therapeutic response decreased [Unknown]
  - Disease recurrence [Unknown]
  - Asthenia [Unknown]
